FAERS Safety Report 15900033 (Version 1)
Quarter: 2019Q1

REPORT INFORMATION
  Report Type: Spontaneous
  Country: US (occurrence: US)
  Receive Date: 20190117
  Receipt Date: 20190117
  Transmission Date: 20190417
  Serious: Yes (Other)
  Sender: FDA-Public Use
  Company Number: None

PATIENT
  Age: 66 Year
  Sex: Male
  Weight: 95.25 kg

DRUGS (8)
  1. ZYPREXA [Suspect]
     Active Substance: OLANZAPINE
  2. VITAMINS [Concomitant]
     Active Substance: VITAMINS
  3. NAVANE [Suspect]
     Active Substance: THIOTHIXENE
  4. PROLIXIN [Suspect]
     Active Substance: FLUPHENAZINE HYDROCHLORIDE
  5. METAMUCIL [Concomitant]
     Active Substance: PLANTAGO SEED
  6. HALDOL [Suspect]
     Active Substance: HALOPERIDOL
  7. THORAZINE [Suspect]
     Active Substance: CHLORPROMAZINE
  8. TRILAFON [Suspect]
     Active Substance: PERPHENAZINE

REACTIONS (6)
  - Tardive dyskinesia [None]
  - Oral disorder [None]
  - Erectile dysfunction [None]
  - Somnolence [None]
  - Aphonia [None]
  - Dry mouth [None]
